FAERS Safety Report 7934955-5 (Version None)
Quarter: 2011Q4

REPORT INFORMATION
  Report Type: 
  Country: None (occurrence: None)
  Receive Date: 20111118
  Receipt Date: 20111107
  Transmission Date: 20120403
  Serious: Yes (Other)
  Sender: FDA-Public Use
  Company Number: 2011AP002008

PATIENT
  Age: 86 Year
  Sex: Female

DRUGS (3)
  1. DOMPERIDONE (DOMPERIDONE) [Concomitant]
  2. PANTOPRAZOLE [Concomitant]
  3. PAROXETINE HCL [Suspect]
     Indication: PRODUCT USED FOR UNKNOWN INDICATION
     Dosage: 20 MG, QD

REACTIONS (8)
  - AKINESIA [None]
  - CEREBRAL ATROPHY [None]
  - SOMNOLENCE [None]
  - VASCULAR DEMENTIA [None]
  - CEREBRAL ISCHAEMIA [None]
  - MUSCLE RIGIDITY [None]
  - BALANCE DISORDER [None]
  - FALL [None]
